FAERS Safety Report 8225659-2 (Version None)
Quarter: 2012Q1

REPORT INFORMATION
  Report Type: 
  Country: None (occurrence: None)
  Receive Date: 20120321
  Receipt Date: 20120313
  Transmission Date: 20120608
  Serious: Yes (Death, Other)
  Sender: FDA-Public Use
  Company Number: GT-PFIZER INC-2012070766

PATIENT
  Age: 76 Year
  Sex: Female

DRUGS (1)
  1. PANTOPRAZOLE [Suspect]
     Indication: PEPTIC ULCER
     Dosage: 40 MG, 2X/DAY
     Route: 048
     Dates: start: 20110201

REACTIONS (4)
  - DECREASED APPETITE [None]
  - NAUSEA [None]
  - HAEMATEMESIS [None]
  - DEATH [None]
